FAERS Safety Report 9753219 (Version 1)
Quarter: 2013Q4

REPORT INFORMATION
  Report Type: Spontaneous
  Country: US (occurrence: US)
  Receive Date: 20131213
  Receipt Date: 20131213
  Transmission Date: 20140711
  Serious: No
  Sender: FDA-Public Use
  Company Number: US-GILEAD-2010-0027629

PATIENT
  Sex: Female
  Weight: 67.58 kg

DRUGS (12)
  1. LETAIRIS [Suspect]
     Indication: PULMONARY ARTERIAL HYPERTENSION
     Route: 048
     Dates: start: 20090611, end: 20100304
  2. DARVOCET [Concomitant]
  3. ATIVAN [Concomitant]
  4. COUMADIN [Concomitant]
  5. LIPITOR [Concomitant]
  6. GLUCOPHAGE [Concomitant]
  7. ADVAIR [Concomitant]
  8. CARTIA XT [Concomitant]
  9. LEXAPRO [Concomitant]
  10. LEVOXYL [Concomitant]
  11. ALTACE [Concomitant]
  12. PREVACID [Concomitant]

REACTIONS (1)
  - Anaemia [Unknown]
